FAERS Safety Report 10350526 (Version 1)
Quarter: 2014Q3

REPORT INFORMATION
  Report Type: Spontaneous
  Country: US (occurrence: None)
  Receive Date: 20140728
  Receipt Date: 20140728
  Transmission Date: 20150326
  Serious: No
  Sender: FDA-Public Use
  Company Number: None

PATIENT
  Age: 35 Year
  Sex: Female
  Weight: 140.62 kg

DRUGS (1)
  1. NEXPLANON [Suspect]
     Active Substance: ETONOGESTREL
     Indication: CONTRACEPTION
     Dates: start: 20140106

REACTIONS (5)
  - Abdominal pain upper [None]
  - Vaginal inflammation [None]
  - Fatigue [None]
  - Menorrhagia [None]
  - Muscle spasms [None]

NARRATIVE: CASE EVENT DATE: 20140305
